FAERS Safety Report 16112045 (Version 1)
Quarter: 2019Q1

REPORT INFORMATION
  Report Type: Spontaneous
  Country: US (occurrence: US)
  Receive Date: 20190325
  Receipt Date: 20190325
  Transmission Date: 20190418
  Serious: No
  Sender: FDA-Public Use
  Company Number: US-ASTRAZENECA-2019SE40543

PATIENT
  Sex: Female

DRUGS (2)
  1. FARXIGA [Suspect]
     Active Substance: DAPAGLIFLOZIN PROPANEDIOL
     Route: 048
  2. IBRANCE [Concomitant]
     Active Substance: PALBOCICLIB

REACTIONS (6)
  - Pain in extremity [Unknown]
  - Asthenia [Unknown]
  - Injection site pain [Unknown]
  - Osteoporosis [Unknown]
  - Neoplasm [Unknown]
  - Paraesthesia [Unknown]
